FAERS Safety Report 19120530 (Version 1)
Quarter: 2021Q2

REPORT INFORMATION
  Report Type: Spontaneous
  Country: GB (occurrence: GB)
  Receive Date: 20210410
  Receipt Date: 20210410
  Transmission Date: 20210717
  Serious: No
  Sender: FDA-Public Use
  Company Number: None

PATIENT
  Age: 48 Year
  Sex: Female
  Weight: 60.78 kg

DRUGS (7)
  1. MINI PILL [Concomitant]
  2. MIRENA [Suspect]
     Active Substance: LEVONORGESTREL
     Dates: start: 20160919, end: 20210406
  3. SERTRALINE [Concomitant]
     Active Substance: SERTRALINE HYDROCHLORIDE
  4. MIRTAZAPINE. [Concomitant]
     Active Substance: MIRTAZAPINE
  5. THYROXINE [Concomitant]
     Active Substance: LEVOTHYROXINE
  6. ZOPLICLONE [Concomitant]
  7. VIT D [Concomitant]
     Active Substance: VITAMIN D NOS

REACTIONS (6)
  - Back pain [None]
  - Poor quality sleep [None]
  - Complication associated with device [None]
  - Anxiety [None]
  - Constipation [None]
  - Abdominal pain upper [None]

NARRATIVE: CASE EVENT DATE: 20170406
